FAERS Safety Report 9733039 (Version 1)
Quarter: 2013Q4

REPORT INFORMATION
  Report Type: Spontaneous
  Country: US (occurrence: None)
  Receive Date: 20131204
  Receipt Date: 20131204
  Transmission Date: 20140711
  Serious: No
  Sender: FDA-Public Use
  Company Number: None

PATIENT
  Age: 58 Year
  Sex: 0
  Weight: 95.26 kg

DRUGS (11)
  1. RECLAST [Suspect]
     Indication: OSTEOPOROSIS
     Dosage: ONCE A YEAR INFUSION
     Dates: start: 20131111
  2. LISINOPRIL [Concomitant]
  3. LEVOTHYROXINE [Concomitant]
  4. NEXIUM [Concomitant]
  5. SIMVASTATIN [Concomitant]
  6. NABUMETONE [Concomitant]
  7. CALCIUM? [Concomitant]
  8. VITAMIN D3 [Concomitant]
  9. CARAFATE [Concomitant]
  10. SINUTAB [Concomitant]
  11. SUDAFED [Concomitant]

REACTIONS (7)
  - Influenza [None]
  - Job dissatisfaction [None]
  - Pain [None]
  - Pain in extremity [None]
  - Asthenia [None]
  - Arthralgia [None]
  - Pain in jaw [None]
